FAERS Safety Report 8081692-5 (Version None)
Quarter: 2012Q1

REPORT INFORMATION
  Report Type: 
  Country: None (occurrence: None)
  Receive Date: 20120130
  Receipt Date: 20120123
  Transmission Date: 20120608
  Serious: Yes (Other)
  Sender: FDA-Public Use
  Company Number: PHHY2012DE006234

PATIENT
  Sex: Female

DRUGS (3)
  1. EXTAVIA [Suspect]
     Indication: MULTIPLE SCLEROSIS
     Dosage: 1 ML, QOD
     Route: 058
     Dates: start: 20100101
  2. CITALOPRAM [Concomitant]
     Dosage: UNK UKN, UNK
     Route: 048
  3. AMITRIPTYLINE HCL [Concomitant]
     Dosage: UNK UKN, UNK
     Route: 048

REACTIONS (5)
  - MULTIPLE SCLEROSIS RELAPSE [None]
  - SCRATCH [None]
  - VISUAL IMPAIRMENT [None]
  - DRUG HYPERSENSITIVITY [None]
  - PRURITUS [None]
